FAERS Safety Report 13046759 (Version 1)
Quarter: 2016Q4

REPORT INFORMATION
  Report Type: Spontaneous
  Country: JP (occurrence: JP)
  Receive Date: 20161220
  Receipt Date: 20161220
  Transmission Date: 20170207
  Serious: Yes (Other)
  Sender: FDA-Public Use
  Company Number: JP-TEVA-2016-JP-002494J

PATIENT
  Age: 6 Decade
  Sex: Male

DRUGS (2)
  1. CONSTAN 0.4MG.TABLETS [Suspect]
     Active Substance: ALPRAZOLAM
     Indication: PRODUCT USED FOR UNKNOWN INDICATION
     Dosage: 1.2 MILLIGRAM DAILY;
     Route: 048
  2. DOGMATYL [Concomitant]
     Active Substance: SULPIRIDE
     Route: 048

REACTIONS (7)
  - Lacrimation increased [Unknown]
  - Thirst [Unknown]
  - Musculoskeletal stiffness [Unknown]
  - Colitis ulcerative [Recovered/Resolved]
  - Headache [Unknown]
  - Back pain [Unknown]
  - Constipation [Unknown]
